FAERS Safety Report 26207819 (Version 1)
Quarter: 2025Q4

REPORT INFORMATION
  Report Type: Spontaneous
  Country: US (occurrence: None)
  Receive Date: 20251225
  Receipt Date: 20251225
  Transmission Date: 20260117
  Serious: No
  Sender: FDA-CTU
  Company Number: None

PATIENT
  Age: 61 Year
  Sex: Female
  Weight: 88.2 kg

DRUGS (12)
  1. VENLAFAXINE HCL [Suspect]
     Active Substance: VENLAFAXINE HYDROCHLORIDE
     Indication: Hot flush
     Dosage: 3 CAPSULES AT BEDTIME ORAL
     Route: 048
     Dates: start: 20220101
  2. VENLAFAXINE HYDROCHLORIDE [Concomitant]
     Active Substance: VENLAFAXINE HYDROCHLORIDE
  3. oxymoron [Concomitant]
  4. acrolimus [Concomitant]
  5. estrogen cream [Concomitant]
  6. VITAMINS [Concomitant]
     Active Substance: VITAMINS
  7. OMEGA 3 [Concomitant]
     Active Substance: CAPSAICIN
  8. moringa [Concomitant]
  9. PROBIOTICS NOS [Concomitant]
     Active Substance: PROBIOTICS NOS
  10. MIRALAX [Concomitant]
     Active Substance: POLYETHYLENE GLYCOL 3350
  11. TYLENOL [Concomitant]
     Active Substance: ACETAMINOPHEN
  12. ALEVE [Concomitant]
     Active Substance: NAPROXEN SODIUM

REACTIONS (1)
  - Urine odour abnormal [None]

NARRATIVE: CASE EVENT DATE: 20251124
